FAERS Safety Report 26101292 (Version 1)
Quarter: 2025Q4

REPORT INFORMATION
  Report Type: Spontaneous
  Country: EU (occurrence: EU)
  Receive Date: 20251128
  Receipt Date: 20251128
  Transmission Date: 20260117
  Serious: Yes (Hospitalization, Other)
  Sender: JOHNSON AND JOHNSON
  Company Number: None

PATIENT
  Age: 56 Year
  Sex: Male
  Weight: 90 kg

DRUGS (1)
  1. REMICADE [Suspect]
     Active Substance: INFLIXIMAB
     Indication: Ankylosing spondylitis
     Dosage: EVERY 6 WEEKS 400MG
     Route: 041
     Dates: start: 20140627, end: 20240306

REACTIONS (1)
  - Follicular lymphoma [Recovered/Resolved]

NARRATIVE: CASE EVENT DATE: 20240628
